FAERS Safety Report 9642148 (Version 2)
Quarter: 2013Q4

REPORT INFORMATION
  Report Type: Spontaneous
  Country: GB (occurrence: GB)
  Receive Date: 20131023
  Receipt Date: 20131028
  Transmission Date: 20140711
  Serious: Yes (Hospitalization)
  Sender: FDA-Public Use
  Company Number: PHHY2013GB117809

PATIENT
  Age: 11 Year
  Sex: Male
  Weight: 28.95 kg

DRUGS (6)
  1. EXJADE [Suspect]
     Indication: THALASSAEMIA BETA
     Dosage: 750 MG, UNK
     Route: 048
  2. EXJADE [Suspect]
     Dosage: 500 MG, QD
     Route: 048
     Dates: start: 20130514, end: 20130520
  3. ZINC SULPHATE [Concomitant]
     Indication: BLOOD ZINC DECREASED
     Dosage: 125 MG, UNK
     Route: 048
  4. CHOLECALCIFEROL [Concomitant]
     Indication: VITAMIN D DECREASED
     Dosage: 400 MG, UNK
     Route: 048
  5. OMEPRAZOLE [Concomitant]
     Dosage: UNK UKN, UNK
  6. ANALGESICS [Concomitant]
     Dosage: UNK UKN, UNK
     Dates: start: 20130312

REACTIONS (5)
  - Ileus paralytic [Recovered/Resolved]
  - Abdominal pain upper [Recovered/Resolved]
  - Hepatitis [Recovered/Resolved]
  - Vomiting [Recovered/Resolved]
  - Abdominal tenderness [Unknown]
